FAERS Safety Report 5006768-8 (Version None)
Quarter: 2006Q2

REPORT INFORMATION
  Report Type: 
  Country: None (occurrence: None)
  Receive Date: 20060516
  Receipt Date: 20060509
  Transmission Date: 20061013
  Serious: Yes (Hospitalization, Other)
  Sender: FDA-Public Use
  Company Number: 2006061742

PATIENT
  Age: 37 Year
  Sex: Female

DRUGS (3)
  1. ZELDOX  (CAPSULES) (ZIPRASIDONE) [Suspect]
     Indication: BIPOLAR I DISORDER
     Dosage: 80 MG (40 MG, 2 IN 1 D), ORAL
     Route: 048
  2. ZYPREXA [Suspect]
     Indication: ILL-DEFINED DISORDER
  3. VENLAFAXINE HCL [Suspect]
     Indication: ILL-DEFINED DISORDER

REACTIONS (6)
  - AGGRESSION [None]
  - HOMICIDAL IDEATION [None]
  - INSOMNIA [None]
  - RESTLESSNESS [None]
  - SELF-INJURIOUS IDEATION [None]
  - WEIGHT INCREASED [None]
